FAERS Safety Report 5731865-9 (Version None)
Quarter: 2008Q2

REPORT INFORMATION
  Report Type: 
  Country: None (occurrence: None)
  Receive Date: 20080508
  Receipt Date: 20080505
  Transmission Date: 20081010
  Serious: Yes (Other)
  Sender: FDA-Public Use
  Company Number: D0057167A

PATIENT
  Age: 44 Year
  Sex: Male
  Weight: 78 kg

DRUGS (8)
  1. TWINRIX [Suspect]
     Indication: PROPHYLAXIS
     Route: 058
     Dates: start: 20080502, end: 20080502
  2. AERIUS [Suspect]
     Dosage: 100MG PER DAY
     Route: 048
  3. DECORTIN [Suspect]
     Dosage: 200MG PER DAY
     Route: 048
  4. DULCOLAX [Suspect]
     Route: 048
  5. KETOTIFEN FUMARATE [Suspect]
     Dosage: 20MG PER DAY
     Route: 048
  6. ACETAMINOPHEN [Suspect]
     Dosage: 15000MG PER DAY
     Route: 048
  7. HOMEOPATHIC DRUG [Suspect]
     Dosage: 100MG PER DAY
     Route: 048
  8. WINE [Suspect]
     Dosage: .5BT PER DAY
     Route: 048

REACTIONS (2)
  - OVERDOSE [None]
  - SUICIDE ATTEMPT [None]
